FAERS Safety Report 11272245 (Version 1)
Quarter: 2015Q2

REPORT INFORMATION
  Report Type: Spontaneous
  Country: US (occurrence: None)
  Receive Date: 20150625
  Receipt Date: 20150625
  Transmission Date: 20150821
  Serious: No
  Sender: FDA-Public Use
  Company Number: A-US2014-109091

PATIENT
  Age: 54 Year
  Sex: Female

DRUGS (4)
  1. VELETRI [Suspect]
     Active Substance: EPOPROSTENOL
     Indication: PULMONARY HYPERTENSION
     Dosage: 12 NG/KG
     Route: 042
     Dates: start: 20141121
  2. NEURONTIN [Concomitant]
     Active Substance: GABAPENTIN
  3. OPSUMIT [Suspect]
     Active Substance: MACITENTAN
     Indication: PULMONARY HYPERTENSION
     Route: 048
  4. REVATIO (SILDENAFIL CITRATE) [Concomitant]

REACTIONS (11)
  - Myalgia [None]
  - Infection [None]
  - Chills [None]
  - Pain in extremity [None]
  - Headache [None]
  - Paraesthesia [None]
  - Pain in jaw [None]
  - Rash macular [None]
  - Catheter site haemorrhage [None]
  - Diarrhoea [None]
  - Oedema peripheral [None]
